FAERS Safety Report 4815769-1 (Version None)
Quarter: 2005Q4

REPORT INFORMATION
  Report Type: 
  Country: None (occurrence: None)
  Receive Date: 20051031
  Receipt Date: 20051026
  Transmission Date: 20060501
  Serious: Yes (Hospitalization)
  Sender: FDA-Public Use
  Company Number: US-GLAXOSMITHKLINE-A0579755A

PATIENT
  Age: 49 Year
  Sex: Female

DRUGS (7)
  1. COREG [Suspect]
     Indication: HYPERTENSION
     Route: 048
  2. NORVASC [Concomitant]
  3. HYZAAR [Concomitant]
  4. CLONIDINE [Concomitant]
  5. AMITRIPTYLINE HCL [Concomitant]
  6. PLAVIX [Concomitant]
  7. ZETIA [Concomitant]

REACTIONS (3)
  - BLOOD PRESSURE INCREASED [None]
  - CARDIAC MURMUR [None]
  - HYPOTENSION [None]
